FAERS Safety Report 18294769 (Version 1)
Quarter: 2020Q3

REPORT INFORMATION
  Report Type: Spontaneous
  Country: US (occurrence: US)
  Receive Date: 20200922
  Receipt Date: 20200922
  Transmission Date: 20201103
  Serious: No
  Sender: FDA-Public Use
  Company Number: US-GLOBAL BLOOD THERAPEUTICS INC-US-GBT-20-01525

PATIENT
  Age: 36 Year
  Sex: Female

DRUGS (3)
  1. OXBRYTA [Suspect]
     Active Substance: VOXELOTOR
     Route: 048
     Dates: start: 2020
  2. ENDARI [Concomitant]
     Active Substance: GLUTAMINE
     Indication: PRODUCT USED FOR UNKNOWN INDICATION
  3. OXBRYTA [Suspect]
     Active Substance: VOXELOTOR
     Indication: SICKLE CELL DISEASE
     Route: 048
     Dates: start: 202001, end: 2020

REACTIONS (6)
  - Red blood cell count increased [Unknown]
  - Abdominal pain upper [Recovered/Resolved]
  - Platelet count increased [Not Recovered/Not Resolved]
  - Haemoglobin increased [Unknown]
  - Diarrhoea [Recovered/Resolved]
  - Haematocrit increased [Unknown]

NARRATIVE: CASE EVENT DATE: 2020
